FAERS Safety Report 7803936-4 (Version None)
Quarter: 2011Q4

REPORT INFORMATION
  Report Type: 
  Country: None (occurrence: None)
  Receive Date: 20111010
  Receipt Date: 20111007
  Transmission Date: 20120403
  Serious: Yes (Other)
  Sender: FDA-Public Use
  Company Number: US-PFIZER INC-2011240212

PATIENT
  Sex: Female
  Weight: 96.599 kg

DRUGS (4)
  1. TRAZODONE [Concomitant]
     Dosage: UNK
  2. ZANTAC [Concomitant]
     Dosage: UNK
  3. ZOLOFT [Suspect]
     Indication: DEPRESSION
     Dosage: 150 MG, 1X/DAY
     Route: 048
     Dates: start: 20060916
  4. ATIVAN [Concomitant]
     Dosage: UNK

REACTIONS (1)
  - OVARIAN CYST [None]
